FAERS Safety Report 8341017-4 (Version None)
Quarter: 2012Q2

REPORT INFORMATION
  Report Type: 
  Country: None (occurrence: None)
  Receive Date: 20120502
  Receipt Date: 20120423
  Transmission Date: 20120825
  Serious: Yes (Hospitalization)
  Sender: FDA-Public Use
  Company Number: 2012SP021419

PATIENT
  Age: 57 Year
  Sex: Male

DRUGS (2)
  1. PEG-INTRON [Suspect]
     Indication: HEPATITIS C
     Dosage: 120 MCG;QW;SC
     Route: 058
     Dates: start: 20120116
  2. COPEGUS [Suspect]
     Indication: HEPATITIS C
     Dosage: 1200 MG;;PO
     Route: 048
     Dates: start: 20120116

REACTIONS (1)
  - URINARY TRACT INFECTION [None]
